FAERS Safety Report 21192224 (Version 1)
Quarter: 2022Q3

REPORT INFORMATION
  Report Type: Spontaneous
  Country: CN (occurrence: CN)
  Receive Date: 20220809
  Receipt Date: 20220809
  Transmission Date: 20221026
  Serious: Yes (Other)
  Sender: FDA-Public Use
  Company Number: CN-NAPPMUNDI-GBR-2022-0100406

PATIENT
  Age: 70 Year
  Sex: Female
  Weight: 41 kg

DRUGS (2)
  1. OXYCONTIN [Suspect]
     Active Substance: OXYCODONE HYDROCHLORIDE
     Indication: Cancer pain
     Dosage: 10 MILLIGRAM, BID (TWICE A DAY)
     Route: 065
     Dates: start: 20220721, end: 20220725
  2. MORPHINE SULFATE [Suspect]
     Active Substance: MORPHINE SULFATE
     Indication: Analgesic therapy
     Dosage: UNK
     Route: 048

REACTIONS (4)
  - Depressed level of consciousness [Recovering/Resolving]
  - Somnolence [Recovering/Resolving]
  - Miosis [Recovering/Resolving]
  - Pupillary reflex impaired [Recovering/Resolving]

NARRATIVE: CASE EVENT DATE: 20220726
